FAERS Safety Report 9369825 (Version 1)
Quarter: 2013Q2

REPORT INFORMATION
  Report Type: Spontaneous
  Country: US (occurrence: US)
  Receive Date: 20130626
  Receipt Date: 20130626
  Transmission Date: 20140414
  Serious: No
  Sender: FDA-Public Use
  Company Number: US-PFIZER INC-2013188087

PATIENT
  Sex: Male

DRUGS (1)
  1. NITROSTAT [Suspect]
     Indication: CHEST PAIN
     Dosage: 1 DF, 1X/DAY

REACTIONS (2)
  - Drug ineffective [Unknown]
  - Product quality issue [Unknown]
